FAERS Safety Report 12845836 (Version 1)
Quarter: 2016Q4

REPORT INFORMATION
  Report Type: Spontaneous
  Country: US (occurrence: US)
  Receive Date: 20161013
  Receipt Date: 20161013
  Transmission Date: 20170207
  Serious: Yes (Life-Threatening, Hospitalization, Other)
  Sender: FDA-Public Use
  Company Number: US-SCIEGEN PHARMACEUTICALS INC-2016SCILIT00482

PATIENT
  Age: 66 Year
  Sex: Male

DRUGS (11)
  1. GLUCOSAMINE [Concomitant]
     Active Substance: GLUCOSAMINE
     Indication: PRODUCT USED FOR UNKNOWN INDICATION
     Dosage: UNK
     Route: 065
  2. HYDROCHLOROTHIAZIDE TABLETS [Suspect]
     Active Substance: HYDROCHLOROTHIAZIDE
     Indication: PRODUCT USED FOR UNKNOWN INDICATION
     Dosage: UNKNOWN
     Route: 065
  3. ASPIRIN. [Concomitant]
     Active Substance: ASPIRIN
     Indication: PRODUCT USED FOR UNKNOWN INDICATION
     Dosage: UNK
     Route: 065
  4. CALCIUM CARBONATE. [Concomitant]
     Active Substance: CALCIUM CARBONATE
     Indication: DYSPEPSIA
     Dosage: UNK
     Route: 065
  5. DISULFIRAM. [Concomitant]
     Active Substance: DISULFIRAM
     Indication: PRODUCT USED FOR UNKNOWN INDICATION
     Dosage: UNK, PRN
     Route: 065
  6. TAMSULOSIN [Concomitant]
     Active Substance: TAMSULOSIN
     Indication: PRODUCT USED FOR UNKNOWN INDICATION
     Dosage: UNK
     Route: 065
  7. AMLODIPINE [Concomitant]
     Active Substance: AMLODIPINE BESYLATE
     Indication: PRODUCT USED FOR UNKNOWN INDICATION
     Dosage: UNK
     Route: 065
  8. IBUPROFEN. [Concomitant]
     Active Substance: IBUPROFEN
     Indication: MUSCULOSKELETAL DISORDER
     Dosage: UNK
     Route: 065
  9. N?3 FATTY ACIDS [Concomitant]
     Indication: PRODUCT USED FOR UNKNOWN INDICATION
     Dosage: UNK
     Route: 065
  10. MULTI VITAMIN [Concomitant]
     Active Substance: VITAMINS
     Indication: PRODUCT USED FOR UNKNOWN INDICATION
     Dosage: UNK
     Route: 065
  11. TADALAFIL [Concomitant]
     Active Substance: TADALAFIL
     Indication: PRODUCT USED FOR UNKNOWN INDICATION
     Dosage: UNK, PRN
     Route: 065

REACTIONS (28)
  - Bone lesion [Unknown]
  - Musculoskeletal stiffness [Unknown]
  - Blood bicarbonate increased [Unknown]
  - Blood creatinine increased [Recovering/Resolving]
  - Blood pressure increased [Unknown]
  - Spinal osteoarthritis [Unknown]
  - Milk-alkali syndrome [Unknown]
  - Pollakiuria [Recovered/Resolved]
  - Tendon injury [Unknown]
  - Atrioventricular block first degree [Unknown]
  - Asthenia [Unknown]
  - Muscle spasms [Recovering/Resolving]
  - Pain in extremity [Unknown]
  - Anaemia [Unknown]
  - Heart rate increased [Unknown]
  - Bundle branch block right [Unknown]
  - Sports injury [Unknown]
  - Chromaturia [Unknown]
  - Acute kidney injury [Unknown]
  - Metabolic alkalosis [Unknown]
  - Listless [Unknown]
  - Influenza like illness [Recovered/Resolved]
  - Urine abnormality [Unknown]
  - Neck pain [Unknown]
  - Constipation [Unknown]
  - Malaise [Recovered/Resolved]
  - Hypercalcaemia [Recovering/Resolving]
  - Musculoskeletal pain [Unknown]
